FAERS Safety Report 23603069 (Version 2)
Quarter: 2024Q2

REPORT INFORMATION
  Report Type: Spontaneous
  Country: CA (occurrence: CA)
  Receive Date: 20240306
  Receipt Date: 20240408
  Transmission Date: 20240716
  Serious: Yes (Death, Hospitalization, Other)
  Sender: FDA-Public Use
  Company Number: CA-BIOCON BIOLOGICS LIMITED-BBL2024001431

PATIENT

DRUGS (1)
  1. OGIVRI [Suspect]
     Active Substance: TRASTUZUMAB-DKST
     Indication: Oesophageal adenocarcinoma
     Dosage: 324 MG, Q2W (150 MG AND 440 MG)
     Route: 042
     Dates: start: 20230704, end: 20240229

REACTIONS (2)
  - Metastases to central nervous system [Fatal]
  - Sepsis [Unknown]
